FAERS Safety Report 25160143 (Version 1)
Quarter: 2025Q2

REPORT INFORMATION
  Report Type: Spontaneous
  Country: NO (occurrence: NO)
  Receive Date: 20250404
  Receipt Date: 20250404
  Transmission Date: 20250716
  Serious: Yes (Death, Hospitalization, Other)
  Sender: CIPLA
  Company Number: NO-NOMAADVRE-RELISM-2025-V6k79q

PATIENT

DRUGS (8)
  1. RIVAROXABAN [Suspect]
     Active Substance: RIVAROXABAN
     Indication: Atrial fibrillation
     Dosage: 20 MILLIGRAM, QD (TABLET) MORNING
     Route: 048
     Dates: start: 20231123, end: 20250227
  2. ATORVASTATIN [Concomitant]
     Active Substance: ATORVASTATIN
     Indication: Ischaemic heart disease prophylaxis
     Dosage: 80 MILLIGRAM, QD (MORNING)
     Route: 048
  3. DAPAGLIFLOZIN [Concomitant]
     Active Substance: DAPAGLIFLOZIN
     Indication: Cardiac failure
     Dosage: 10 MILLIGRAM, QD (MORNING)
     Route: 048
     Dates: start: 20240424
  4. INSULIN HUMAN [Concomitant]
     Active Substance: INSULIN HUMAN
     Indication: Type 2 diabetes mellitus
     Dosage: UNK, BID (36 IU MORNING AND 16 IU EVENING)
     Route: 058
     Dates: start: 20240424
  5. CANDESARTAN [Concomitant]
     Active Substance: CANDESARTAN
     Indication: Hypertension
     Dosage: 16 MILLIGRAM, QD (MORNING)
     Route: 048
     Dates: start: 20240424
  6. METOPROLOL [Concomitant]
     Active Substance: METOPROLOL
     Indication: Hypertension
     Dosage: 50 MILLIGRAM, QD (MORNING)
     Route: 048
     Dates: start: 20231016
  7. PANTOPRAZOLE [Concomitant]
     Active Substance: PANTOPRAZOLE
     Indication: Oesophageal disorder
     Dosage: 20 MILLIGRAM, QD (MORNING)
     Route: 048
     Dates: start: 20240424
  8. TAMSULOSIN MEDLITE [Concomitant]
     Indication: Prostatic disorder
     Dosage: 0.4 MILLIGRAM, QD
     Route: 048
     Dates: start: 20240424

REACTIONS (2)
  - Multiple organ dysfunction syndrome [Fatal]
  - Cerebral haemorrhage [Fatal]

NARRATIVE: CASE EVENT DATE: 20250227
